FAERS Safety Report 8335983-0 (Version None)
Quarter: 2012Q2

REPORT INFORMATION
  Report Type: 
  Country: None (occurrence: None)
  Receive Date: 20120501
  Receipt Date: 20120501
  Transmission Date: 20120825
  Serious: Yes (Hospitalization)
  Sender: FDA-Public Use
  Company Number: None

PATIENT
  Age: 39 Year
  Sex: Female
  Weight: 57.2 kg

DRUGS (12)
  1. TUSSIONEX [Concomitant]
  2. TRILEPTAL [Concomitant]
  3. ALBUTEROL [Concomitant]
  4. KLONOPIN [Concomitant]
  5. VANCOMYCIN [Suspect]
     Indication: BACTERAEMIA
     Dosage: 750MG Q12HR IVPB  RECENT
     Route: 042
  6. ATENOLOL [Concomitant]
  7. TOPAMAX [Concomitant]
  8. LEVOTHYROXINE SODIUM [Concomitant]
  9. VENLAFAXINE [Concomitant]
  10. OXYCODONE AND ACETAMINOPHEN [Concomitant]
  11. TRAZODONE HCL [Concomitant]
  12. PHENERGAN [Concomitant]

REACTIONS (2)
  - INFUSION SITE EXTRAVASATION [None]
  - INFUSION SITE NECROSIS [None]
